FAERS Safety Report 9051185 (Version 3)
Quarter: 2013Q3

REPORT INFORMATION
  Report Type: Spontaneous
  Country: US (occurrence: US)
  Receive Date: 20130206
  Receipt Date: 20130814
  Transmission Date: 20140515
  Serious: Yes (Other)
  Sender: FDA-Public Use
  Company Number: US-BRISTOL-MYERS SQUIBB COMPANY-17327297

PATIENT
  Age: 56 Year
  Sex: Female

DRUGS (1)
  1. ORENCIA FOR INJ [Suspect]
     Indication: RHEUMATOID ARTHRITIS
     Dosage: LAST INJ 28JAN13,29JUL13
     Route: 058

REACTIONS (9)
  - Foot operation [Unknown]
  - Limb reconstructive surgery [Unknown]
  - Ankle operation [Unknown]
  - Joint swelling [Recovering/Resolving]
  - Local swelling [Unknown]
  - Pain in extremity [Unknown]
  - Muscle spasms [Unknown]
  - Back pain [Unknown]
  - Drug ineffective [Unknown]
